FAERS Safety Report 9301721 (Version 2)
Quarter: 2013Q3

REPORT INFORMATION
  Report Type: Spontaneous
  Country: US (occurrence: US)
  Receive Date: 20130521
  Receipt Date: 20130828
  Transmission Date: 20140515
  Serious: No
  Sender: FDA-Public Use
  Company Number: US-009507513-1305USA012356

PATIENT
  Sex: Female
  Weight: 57.14 kg

DRUGS (4)
  1. ZEGERID OTC CAPSULES [Suspect]
     Indication: GASTROOESOPHAGEAL REFLUX DISEASE
     Dosage: 40 MG, BID
     Route: 048
     Dates: start: 2008, end: 2013
  2. ZEGERID OTC CAPSULES [Suspect]
     Indication: MEDICAL OBSERVATION
  3. CHOLECALCIFEROL [Concomitant]
     Indication: PRODUCT USED FOR UNKNOWN INDICATION
     Dosage: UNK, UNKNOWN
  4. NAPROXEN [Concomitant]
     Indication: ARTHRITIS
     Dosage: UNK, UNKNOWN

REACTIONS (4)
  - Inappropriate schedule of drug administration [Unknown]
  - Overdose [Unknown]
  - Incorrect drug administration duration [Unknown]
  - Off label use [Unknown]
